FAERS Safety Report 7420550-3 (Version None)
Quarter: 2011Q2

REPORT INFORMATION
  Report Type: 
  Country: None (occurrence: None)
  Receive Date: 20110418
  Receipt Date: 20110414
  Transmission Date: 20111010
  Serious: No
  Sender: FDA-Public Use
  Company Number: US-PFIZER INC-2011082660

PATIENT
  Sex: Male
  Weight: 83.447 kg

DRUGS (1)
  1. ALAVERT [Suspect]
     Indication: HYPERSENSITIVITY
     Dosage: UNK
     Dates: start: 20110413

REACTIONS (3)
  - DRUG INEFFECTIVE [None]
  - SNEEZING [None]
  - PRURITUS [None]
